FAERS Safety Report 8051299-4 (Version None)
Quarter: 2012Q1

REPORT INFORMATION
  Report Type: 
  Country: None (occurrence: None)
  Receive Date: 20120117
  Receipt Date: 20120106
  Transmission Date: 20120608
  Serious: Yes (Other)
  Sender: FDA-Public Use
  Company Number: US-ASTRAZENECA-2012SE01498

PATIENT
  Age: 63 Year
  Sex: Male

DRUGS (5)
  1. CRESTOR [Suspect]
     Route: 048
  2. ACIPHEX [Concomitant]
  3. ADVAIR DISKUS 100/50 [Concomitant]
  4. MAGNESIUM [Concomitant]
  5. SINGULAIR [Concomitant]

REACTIONS (2)
  - METASTASES TO BONE [None]
  - DIABETES MELLITUS [None]
